FAERS Safety Report 8308777-X (Version None)
Quarter: 2012Q2

REPORT INFORMATION
  Report Type: 
  Country: None (occurrence: None)
  Receive Date: 20120424
  Receipt Date: 20120419
  Transmission Date: 20120825
  Serious: Yes (Death, Hospitalization)
  Sender: FDA-Public Use
  Company Number: JP-PFIZER INC-2011130274

PATIENT
  Age: 56 Year
  Sex: Female
  Weight: 49.2 kg

DRUGS (4)
  1. TEMSIROLIMUS [Suspect]
     Indication: RENAL CELL CARCINOMA
     Dosage: 25 MG, WEEKLY
     Route: 041
     Dates: start: 20110324, end: 20110401
  2. VENA [Concomitant]
     Indication: PROPHYLAXIS
     Dosage: 5 DF, 1X/DAY
     Route: 048
  3. LANSOPRAZOLE [Concomitant]
     Dosage: 30 MG (1 TABLET), 1X/DAY
     Route: 048
     Dates: start: 20110305
  4. TEMSIROLIMUS [Suspect]
     Dosage: 10 MG, WEEKLY
     Route: 041
     Dates: start: 20110408, end: 20110415

REACTIONS (3)
  - LIVER DISORDER [None]
  - DISEASE PROGRESSION [None]
  - RENAL CELL CARCINOMA [None]
